FAERS Safety Report 4277541-3 (Version None)
Quarter: 2004Q1

REPORT INFORMATION
  Report Type: 
  Country: None (occurrence: None)
  Receive Date: 20040121
  Receipt Date: 20040106
  Transmission Date: 20041129
  Serious: Yes (Life-Threatening, Hospitalization, Other)
  Sender: FDA-Public Use
  Company Number: 2004-00185

PATIENT
  Age: 30 Year
  Sex: Female
  Weight: 55 kg

DRUGS (11)
  1. FERRLECIT [Suspect]
     Indication: IRON DEFICIENCY ANAEMIA
     Dosage: 250 MG, IN 150ML NS OVER 40 MIN., INTRAVENOUS; SEE IMAGE
     Route: 042
     Dates: start: 20030601, end: 20030601
  2. FERRLECIT [Suspect]
     Indication: IRON DEFICIENCY ANAEMIA
     Dosage: 250 MG, IN 150ML NS OVER 40 MIN., INTRAVENOUS; SEE IMAGE
     Route: 042
     Dates: start: 20031101, end: 20031101
  3. FERRLECIT [Suspect]
     Indication: IRON DEFICIENCY ANAEMIA
     Dosage: 250 MG, IN 150ML NS OVER 40 MIN., INTRAVENOUS; SEE IMAGE
     Route: 042
     Dates: start: 20031223, end: 20031223
  4. EPOGEN [Concomitant]
  5. VITAMIN B COMPLEX (PYRIDOXINE HYDROCHLORIDE, THIAMINE HYDROCHLORIDE, R [Concomitant]
  6. PROZAC [Concomitant]
  7. ZYRTEC [Concomitant]
  8. NORVASC [Concomitant]
  9. HECTOROL [Concomitant]
  10. MONOPRIL [Concomitant]
  11. RENAGEL [Concomitant]

REACTIONS (7)
  - ANGIONEUROTIC OEDEMA [None]
  - DYSPNOEA [None]
  - EYE SWELLING [None]
  - MEDICATION ERROR [None]
  - SWELLING FACE [None]
  - VASCULAR ACCESS COMPLICATION [None]
  - VOMITING [None]
